FAERS Safety Report 7688492-6 (Version None)
Quarter: 2011Q3

REPORT INFORMATION
  Report Type: 
  Country: None (occurrence: None)
  Receive Date: 20110817
  Receipt Date: 20110808
  Transmission Date: 20111222
  Serious: Yes (Hospitalization)
  Sender: FDA-Public Use
  Company Number: FR-JNJFOC-20110800270

PATIENT
  Sex: Male

DRUGS (5)
  1. DIPIPERON [Concomitant]
     Dosage: 3 GOUTTS IN THE MORNING AND NOON, 6 GOUTTS IN THE EVENING
     Route: 065
  2. CONCERTA [Suspect]
     Indication: PSYCHOMOTOR HYPERACTIVITY
     Route: 048
     Dates: start: 20100901, end: 20101201
  3. MELATONIN [Concomitant]
  4. RITALIN [Concomitant]
     Dosage: 10 MG IN THE MORNING AND 5 MG IN AT NOON.
     Route: 065
  5. DIPIPERON [Concomitant]
     Dosage: 3 GOUTTS 3 TIMES A DAY
     Route: 065

REACTIONS (5)
  - DRUG ADMINISTERED TO PATIENT OF INAPPROPRIATE AGE [None]
  - ABNORMAL BEHAVIOUR [None]
  - PSYCHOMOTOR HYPERACTIVITY [None]
  - INSOMNIA [None]
  - DERMATILLOMANIA [None]
